FAERS Safety Report 9365876 (Version 1)
Quarter: 2013Q2

REPORT INFORMATION
  Report Type: Spontaneous
  Country: US (occurrence: None)
  Receive Date: 20130624
  Receipt Date: 20130624
  Transmission Date: 20140414
  Serious: Yes (Other)
  Sender: FDA-Public Use
  Company Number: None

PATIENT
  Age: 55 Year
  Sex: Female
  Weight: 69.85 kg

DRUGS (2)
  1. METHYLPHENIDATE 20MG MALLINCKRODT [Suspect]
     Route: 048
     Dates: start: 20100913, end: 20110121
  2. METHYLPHENIDATE [Suspect]
     Indication: ATTENTION DEFICIT/HYPERACTIVITY DISORDER
     Route: 048
     Dates: start: 201305

REACTIONS (2)
  - Nausea [None]
  - Drug ineffective [None]
